FAERS Safety Report 9462361 (Version 1)
Quarter: 2013Q3

REPORT INFORMATION
  Report Type: Spontaneous
  Country: US (occurrence: None)
  Receive Date: 20130815
  Receipt Date: 20130815
  Transmission Date: 20140515
  Serious: Yes (Life-Threatening, Hospitalization)
  Sender: FDA-Public Use
  Company Number: None

PATIENT
  Age: 44 Year
  Sex: Male
  Weight: 154 kg

DRUGS (12)
  1. XARELTO [Suspect]
     Indication: THROMBOSIS PROPHYLAXIS
     Dosage: 2 TABLETS
     Route: 048
  2. OXYCODONE-ACETAMINOPHEN ( PERCOCET) [Concomitant]
  3. PRASUGREL ( EFFIENT) [Concomitant]
  4. CYCLOBENZAPRINE (FLEXERIL) [Concomitant]
  5. OMEPRAZOLE ( PRILOSEC) [Concomitant]
  6. GABAPENTIN ( NEURONTIN) [Concomitant]
  7. ALBUTEROL ( PROVENTIL HFA) [Concomitant]
  8. CARVEDILOL ( COREG) [Concomitant]
  9. CRESTOR [Concomitant]
  10. SPIRONOLACTONE (ALDACTONE) [Concomitant]
  11. NITROGLYCERIN ( NITROSTAT) [Concomitant]
  12. INSULIN GLARGINE ( LANTUS) [Concomitant]

REACTIONS (1)
  - Acute myocardial infarction [None]
